FAERS Safety Report 20736336 (Version 1)
Quarter: 2022Q2

REPORT INFORMATION
  Report Type: Spontaneous
  Country: ES (occurrence: ES)
  Receive Date: 20220421
  Receipt Date: 20220421
  Transmission Date: 20220721
  Serious: Yes (Other)
  Sender: FDA-Public Use
  Company Number: ES-PFIZER INC-202200414835

PATIENT
  Age: 50 Year
  Sex: Male

DRUGS (8)
  1. TRAMADOL [Suspect]
     Active Substance: TRAMADOL
     Indication: Neuralgia
     Dosage: UNK
  2. TRAMADOL [Suspect]
     Active Substance: TRAMADOL
     Indication: Analgesic therapy
  3. LYRICA [Suspect]
     Active Substance: PREGABALIN
     Indication: Analgesic therapy
     Dosage: UNK
  4. LYRICA [Suspect]
     Active Substance: PREGABALIN
     Indication: Neuralgia
  5. MORPHINE [Suspect]
     Active Substance: MORPHINE
     Indication: Neuralgia
     Dosage: UNK
  6. MORPHINE [Suspect]
     Active Substance: MORPHINE
     Indication: Analgesic therapy
  7. OXYCODONE [Suspect]
     Active Substance: OXYCODONE
     Indication: Analgesic therapy
     Dosage: UNK
  8. OXYCODONE [Suspect]
     Active Substance: OXYCODONE
     Indication: Neuralgia

REACTIONS (1)
  - Drug ineffective [Unknown]
